FAERS Safety Report 8199097-5 (Version None)
Quarter: 2012Q1

REPORT INFORMATION
  Report Type: 
  Country: None (occurrence: None)
  Receive Date: 20120309
  Receipt Date: 20120306
  Transmission Date: 20120608
  Serious: Yes (Hospitalization)
  Sender: FDA-Public Use
  Company Number: CA-AMGEN-CANCT2012002334

PATIENT
  Age: 60 Year
  Sex: Female

DRUGS (15)
  1. PLACEBO [Suspect]
     Indication: BREAST CANCER
     Dosage: 120 MG, Q3WK
     Dates: start: 20111102
  2. VITAMIN D [Concomitant]
     Dosage: 400 IU, QD
     Route: 048
     Dates: start: 20111102
  3. FLUOROURACIL [Concomitant]
     Dosage: UNK UNK, Q3WK
     Route: 042
     Dates: start: 20111102, end: 20111214
  4. PROCHLORPERAZINE [Concomitant]
     Dosage: 10 MG, PRN
     Dates: start: 20111103, end: 20120111
  5. CYCLOPHOSPHAMIDE [Concomitant]
     Dosage: UNK UNK, Q3WK
     Route: 042
     Dates: start: 20111102, end: 20111214
  6. DEXAMETHASONE [Concomitant]
     Dosage: 8 MG, UNK
     Route: 042
     Dates: start: 20111102
  7. IMODIUM [Concomitant]
     Dosage: UNK UNK, PRN
     Route: 048
     Dates: start: 20111221, end: 20120108
  8. NEUPOGEN [Suspect]
     Dosage: 300 MUG, UNK
     Route: 058
     Dates: start: 20120105, end: 20120111
  9. MAXERAN [Concomitant]
     Dosage: 10 MG, PRN
     Dates: start: 20111221, end: 20120120
  10. BLINDED DENOSUMAB [Suspect]
     Indication: BREAST CANCER
     Dosage: 120 MG, Q3WK
     Dates: start: 20111102
  11. EPIRUBICIN [Concomitant]
     Dosage: UNK UNK, Q3WK
     Route: 042
     Dates: start: 20111102, end: 20111214
  12. EMEND [Concomitant]
     Dosage: 125 MG, UNK
     Route: 048
     Dates: start: 20111214, end: 20120106
  13. DOCETAXEL [Concomitant]
     Dosage: 165 MG, UNK
     Route: 042
     Dates: start: 20120104, end: 20120104
  14. CALCIUM [Concomitant]
     Dosage: 600 MG, QD
     Route: 048
     Dates: start: 20111102
  15. PREVACID [Concomitant]
     Dosage: 30 MG, UNK
     Route: 048
     Dates: start: 20060201

REACTIONS (6)
  - DEHYDRATION [None]
  - PYREXIA [None]
  - DIARRHOEA [None]
  - MYALGIA [None]
  - NAUSEA [None]
  - ARTHRALGIA [None]
